FAERS Safety Report 11150053 (Version 1)
Quarter: 2015Q2

REPORT INFORMATION
  Report Type: Spontaneous
  Country: US (occurrence: US)
  Receive Date: 20150529
  Receipt Date: 20150529
  Transmission Date: 20150821
  Serious: No
  Sender: FDA-Public Use
  Company Number: US-PFIZER INC-2015173394

PATIENT
  Age: 64 Year
  Sex: Female
  Weight: 74 kg

DRUGS (3)
  1. LYRICA [Suspect]
     Active Substance: PREGABALIN
     Indication: PAIN
     Dosage: 50 MG, 3X/DAY
  2. VICODIN [Concomitant]
     Active Substance: ACETAMINOPHEN\HYDROCODONE BITARTRATE
  3. LYRICA [Suspect]
     Active Substance: PREGABALIN
     Indication: MONOCLONAL GAMMOPATHY
     Dosage: 100 MG, 3X/DAY

REACTIONS (4)
  - Abdominal pain upper [Unknown]
  - Pain [Unknown]
  - Condition aggravated [Unknown]
  - Drug ineffective for unapproved indication [Not Recovered/Not Resolved]
